FAERS Safety Report 17410812 (Version 4)
Quarter: 2020Q1

REPORT INFORMATION
  Report Type: Spontaneous
  Country: US (occurrence: US)
  Receive Date: 20200212
  Receipt Date: 20200317
  Transmission Date: 20200409
  Serious: Yes (Hospitalization, Other)
  Sender: FDA-Public Use
  Company Number: US-PFIZER INC-2020063114

PATIENT
  Age: 22 Year
  Sex: Female
  Weight: 54.42 kg

DRUGS (4)
  1. EFFEXOR [Concomitant]
     Active Substance: VENLAFAXINE HYDROCHLORIDE
     Indication: DEPRESSION
     Dosage: 115.5 MG, 1X/DAY
     Dates: start: 20181120
  2. PIRMELLA [Concomitant]
     Active Substance: ETHINYL ESTRADIOL\NORETHINDRONE
     Indication: CONTRACEPTION
     Dosage: UNK, 1X/DAY (1 MG/35 MCG)
     Dates: start: 20180211
  3. EUCRISA [Suspect]
     Active Substance: CRISABOROLE
     Indication: ECZEMA EYELIDS
     Dosage: UNK, 2X/DAY (TO AFFECTED AREAS)
     Route: 061
     Dates: start: 201909, end: 201909
  4. EUCRISA [Suspect]
     Active Substance: CRISABOROLE
     Indication: ECZEMA
     Dosage: UNK, (1 APPLICATION) 2X/DAY
     Route: 061
     Dates: start: 20190909, end: 20190910

REACTIONS (6)
  - Swelling face [Not Recovered/Not Resolved]
  - Drug hypersensitivity [Unknown]
  - Facial pain [Not Recovered/Not Resolved]
  - Rash [Recovered/Resolved]
  - Eczema [Not Recovered/Not Resolved]
  - Application site pain [Recovered/Resolved]

NARRATIVE: CASE EVENT DATE: 201909
